FAERS Safety Report 19055860 (Version 1)
Quarter: 2021Q1

REPORT INFORMATION
  Report Type: Spontaneous
  Country: US (occurrence: US)
  Receive Date: 20210324
  Receipt Date: 20210324
  Transmission Date: 20210420
  Serious: No
  Sender: FDA-Public Use
  Company Number: US-BIOGEN-2021BI00993051

PATIENT
  Age: 50 Year
  Sex: Female

DRUGS (1)
  1. TECFIDERA [Suspect]
     Active Substance: DIMETHYL FUMARATE
     Indication: MULTIPLE SCLEROSIS
     Route: 065

REACTIONS (10)
  - Feeling abnormal [Unknown]
  - Memory impairment [Unknown]
  - Mobility decreased [Unknown]
  - Product dose omission in error [Unknown]
  - Cataract [Unknown]
  - Nasal congestion [Unknown]
  - Liver function test increased [Unknown]
  - Hypoaesthesia [Unknown]
  - Illness [Unknown]
  - Alopecia [Unknown]

NARRATIVE: CASE EVENT DATE: 201510
